FAERS Safety Report 13783367 (Version 2)
Quarter: 2020Q3

REPORT INFORMATION
  Report Type: Report from Study
  Country: US (occurrence: US)
  Receive Date: 20170724
  Receipt Date: 20170816
  Transmission Date: 20201104
  Serious: Yes (Life-Threatening, Other)
  Sender: FDA-Public Use
  Company Number: US-ASTRAZENECA-2017SE74218

PATIENT
  Age: 20104 Day
  Sex: Female
  Weight: 88 kg

DRUGS (12)
  1. SERTRALINE [Concomitant]
     Active Substance: SERTRALINE HYDROCHLORIDE
     Dosage: 50 MG TABLET, ONCE A DAILY
     Route: 048
     Dates: start: 20150602
  2. FLUOCINOLONE ACETONIDE. [Concomitant]
     Active Substance: FLUOCINOLONE ACETONIDE
     Indication: RASH
     Dosage: TWICE A DAILY
     Route: 061
     Dates: start: 20170712
  3. CALTRATE WITH VITAMIN D3 [Concomitant]
     Dosage: 600 MG?800 UNIT TABLET, TWICE A DAY
     Route: 048
     Dates: start: 20170626
  4. METHIMAZOLE. [Concomitant]
     Active Substance: METHIMAZOLE
     Route: 048
     Dates: start: 20130820
  5. NORCO [Concomitant]
     Active Substance: ACETAMINOPHEN\HYDROCODONE BITARTRATE
     Dosage: 5MG?325 MG TABLET, TWICE A DAY PRN
     Route: 048
     Dates: start: 20170627
  6. DULCOLAX NOS [Concomitant]
     Active Substance: BISACODYL OR DOCUSATE SODIUM
     Indication: CONSTIPATION
     Dosage: PRN
     Route: 048
     Dates: start: 20140807
  7. TREMELIMUMAB. [Suspect]
     Active Substance: TREMELIMUMAB
     Indication: BREAST CANCER FEMALE
     Dosage: 88.3 MG, MONTHLY
     Route: 042
     Dates: start: 20170718, end: 20170718
  8. ALPRAZOLAM. [Concomitant]
     Active Substance: ALPRAZOLAM
     Dosage: 1 TABLET, TWICE A DAY, AS REQUIRED
     Route: 048
     Dates: start: 20170710
  9. ZOFRAN ODT [Concomitant]
     Active Substance: ONDANSETRON HYDROCHLORIDE
     Indication: NAUSEA
     Dosage: 8 MG TABLET EACH 8 HOURS PRN
     Route: 048
     Dates: start: 20170602
  10. MEDI4736 [Suspect]
     Active Substance: DURVALUMAB
     Indication: BREAST CANCER FEMALE
     Dosage: 46.5 MG MONTHLY
     Route: 042
     Dates: start: 20170718, end: 20170718
  11. AMBIEN [Concomitant]
     Active Substance: ZOLPIDEM TARTRATE
     Dosage: 1 TABLET, DAILY AT BED TIME
     Route: 048
     Dates: start: 20170106
  12. AZD9150 [Suspect]
     Active Substance: DANVATIRSEN
     Indication: BREAST CANCER FEMALE
     Dosage: 116.3 MG MONTHLY
     Route: 042
     Dates: start: 20170710, end: 20170718

REACTIONS (1)
  - Pulmonary embolism [Recovered/Resolved]

NARRATIVE: CASE EVENT DATE: 20170718
